FAERS Safety Report 9203560 (Version 2)
Quarter: 2013Q2

REPORT INFORMATION
  Report Type: Spontaneous
  Country: US (occurrence: US)
  Receive Date: 20130402
  Receipt Date: 20130516
  Transmission Date: 20140414
  Serious: Yes (Other)
  Sender: FDA-Public Use
  Company Number: PHEH2013US006882

PATIENT
  Sex: Female

DRUGS (1)
  1. EXELON PATCH [Suspect]
     Indication: DEMENTIA
     Route: 062

REACTIONS (4)
  - Confusional state [Recovering/Resolving]
  - Hallucination [Recovering/Resolving]
  - Hypokinesia [Recovering/Resolving]
  - Memory impairment [Recovering/Resolving]
